FAERS Safety Report 11842963 (Version 3)
Quarter: 2017Q1

REPORT INFORMATION
  Report Type: Spontaneous
  Country: US (occurrence: US)
  Receive Date: 20151216
  Receipt Date: 20170207
  Transmission Date: 20170428
  Serious: No
  Sender: FDA-Public Use
  Company Number: US-LUNDBECK-DKLU2005999

PATIENT
  Age: 82 Year
  Sex: Female

DRUGS (4)
  1. NORTHERA [Suspect]
     Active Substance: DROXIDOPA
     Indication: ORTHOSTATIC HYPOTENSION
     Route: 048
  2. NORTHERA [Suspect]
     Active Substance: DROXIDOPA
     Indication: MOVEMENT DISORDER
  3. NORTHERA [Suspect]
     Active Substance: DROXIDOPA
     Indication: EXTRAPYRAMIDAL DISORDER
  4. NORTHERA [Suspect]
     Active Substance: DROXIDOPA
     Indication: DIZZINESS
     Route: 048

REACTIONS (6)
  - Vomiting [Unknown]
  - Abdominal pain upper [Unknown]
  - Dizziness [Unknown]
  - Nausea [Unknown]
  - Dyspepsia [Unknown]
  - Drug ineffective [Unknown]

NARRATIVE: CASE EVENT DATE: 201510
